FAERS Safety Report 14882905 (Version 7)
Quarter: 2018Q3

REPORT INFORMATION
  Report Type: Report from Study
  Country: JP (occurrence: JP)
  Receive Date: 20180511
  Receipt Date: 20180904
  Transmission Date: 20181010
  Serious: Yes (Hospitalization)
  Sender: FDA-Public Use
  Company Number: JP-PFIZER INC-2018155420

PATIENT
  Age: 70 Year
  Sex: Male
  Weight: 54.3 kg

DRUGS (21)
  1. UNISIA [Concomitant]
     Active Substance: AMLODIPINE BESYLATE\CANDESARTAN CILEXETIL
     Dosage: 1 DF, UNK
     Dates: start: 20130703, end: 20180410
  2. AZUNOL [Concomitant]
     Active Substance: SODIUM GUALENATE
     Dosage: 1 DF, (STANDARD SOLUTION)
     Route: 061
     Dates: start: 20170725
  3. ACETYLOL OINTMENT [Concomitant]
     Dosage: 1 DF, UNK
     Dates: start: 20170725
  4. AXITINIB [Suspect]
     Active Substance: AXITINIB
     Dosage: 3 MG, DAILY (CYCLE 13)
     Route: 048
     Dates: start: 20180410, end: 20180410
  5. MAGMITT [Concomitant]
     Active Substance: MAGNESIUM OXIDE
     Dosage: 250 MG, UNK
     Dates: start: 20170630
  6. ATORVASTATIN [Concomitant]
     Active Substance: ATORVASTATIN
     Dosage: 10 MG, UNK
     Dates: start: 20180110, end: 20180619
  7. ZOMETA [Concomitant]
     Active Substance: ZOLEDRONIC ACID
     Indication: ANALGESIC THERAPY
     Dosage: 4 MG, UNK
     Route: 042
     Dates: start: 20180403
  8. AMLODIPINE [Concomitant]
     Active Substance: AMLODIPINE BESYLATE
     Dosage: 5 MG, UNK
     Dates: start: 20170801, end: 20180409
  9. AXITINIB [Suspect]
     Active Substance: AXITINIB
     Indication: RENAL CELL CARCINOMA
     Dosage: 5 MG, 2X/DAY
     Route: 048
     Dates: start: 20170725, end: 20180409
  10. PEMBROLIZUMAB. [Suspect]
     Active Substance: PEMBROLIZUMAB
     Dosage: 200 MG, EVERY 3 WEEKS (CYCLE 13)
     Route: 042
     Dates: start: 20180403, end: 20180403
  11. PEMBROLIZUMAB. [Suspect]
     Active Substance: PEMBROLIZUMAB
     Dosage: 200 MG, EVERY 3 WEEKS
     Route: 042
     Dates: start: 20180424
  12. BAYASPIRIN [Concomitant]
     Active Substance: ASPIRIN
     Dosage: 100 MG, UNK
     Dates: start: 20130703
  13. KETOPROFEN. [Concomitant]
     Active Substance: KETOPROFEN
     Dosage: 1 DF, UNK
     Route: 003
     Dates: start: 20180323
  14. SIR EPHEDRIN PAEDRIATR. [Concomitant]
     Dosage: 40 MG, UNK
     Dates: start: 20180410, end: 20180410
  15. SODIUM CHLORIDE. [Concomitant]
     Active Substance: SODIUM CHLORIDE
     Dosage: 500 ML, UNK
     Dates: start: 20180410, end: 20180410
  16. FEBURIC [Concomitant]
     Active Substance: FEBUXOSTAT
     Dosage: 10 MG, UNK
     Dates: start: 20180131
  17. PARIET [Concomitant]
     Active Substance: RABEPRAZOLE SODIUM
     Dosage: 10 MG, UNK
     Dates: start: 20160315
  18. MS COOL SHIPPU [Concomitant]
     Dosage: 1 DF, UNK
     Route: 003
     Dates: start: 20170731
  19. BFLUID [Concomitant]
     Active Substance: AMINO ACIDS\DEXTROSE\ELECTROLYTES NOS\VITAMINS
     Indication: PROPHYLAXIS
     Dosage: 500 ML, UNK
     Dates: start: 20180410, end: 20180410
  20. PEMBROLIZUMAB. [Suspect]
     Active Substance: PEMBROLIZUMAB
     Indication: RENAL CELL CARCINOMA
     Dosage: 200 MG, EVERY 3 WEEKS (INJECTION VOLUME: 108 ML)
     Route: 042
     Dates: start: 20170725, end: 20180313
  21. POLARAMINE [Concomitant]
     Active Substance: DEXCHLORPHENIRAMINE MALEATE
     Dosage: 2 MG, UNK
     Dates: start: 20180220

REACTIONS (1)
  - Malaise [Recovered/Resolved]

NARRATIVE: CASE EVENT DATE: 20180410
